FAERS Safety Report 9838952 (Version 1)
Quarter: 2013Q4

REPORT INFORMATION
  Report Type: Spontaneous
  Country: US (occurrence: None)
  Receive Date: 20131206
  Receipt Date: 20131206
  Transmission Date: 20140711
  Serious: Yes (Other)
  Sender: FDA-Public Use
  Company Number: 386009

PATIENT
  Age: 62 Year
  Sex: Male

DRUGS (2)
  1. NOVOLOG FLEXPEN (INSULIN ASPART) SOLUTION FOR INJECTION, 100U/ML [Suspect]
     Indication: TYPE 2 DIABETES MELLITUS
     Dates: end: 2012
  2. LYRICA (PREGABALIN) [Concomitant]

REACTIONS (3)
  - Hypoglycaemic unconsciousness [None]
  - Diabetic neuropathy [None]
  - Condition aggravated [None]
